FAERS Safety Report 4922762-7 (Version None)
Quarter: 2006Q1

REPORT INFORMATION
  Report Type: 
  Country: None (occurrence: None)
  Receive Date: 20060224
  Receipt Date: 20030605
  Transmission Date: 20060701
  Serious: Yes (Hospitalization, Disabling, Other)
  Sender: FDA-Public Use
  Company Number: US-MERCK-0306USA00743

PATIENT
  Age: 46 Year
  Sex: Male
  Weight: 95 kg

DRUGS (9)
  1. VIOXX [Suspect]
     Indication: BACK PAIN
     Route: 048
     Dates: start: 20010518, end: 20010519
  2. VIOXX [Suspect]
     Indication: MUSCLE STRAIN
     Route: 048
     Dates: start: 20010518, end: 20010519
  3. LIPITOR [Concomitant]
     Route: 065
  4. PRILOSEC [Concomitant]
     Route: 048
  5. CARDIZEM CD [Concomitant]
     Route: 065
  6. CARDIZEM CD [Concomitant]
     Route: 065
  7. LEVSIN [Concomitant]
     Route: 065
  8. ASPIRIN [Concomitant]
     Route: 065
  9. CELEXA [Concomitant]
     Route: 065

REACTIONS (12)
  - ACUTE MYOCARDIAL INFARCTION [None]
  - ACUTE SINUSITIS [None]
  - ADVERSE EVENT [None]
  - ANGINA PECTORIS [None]
  - BLOOD GLUCOSE INCREASED [None]
  - BLOOD PRESSURE INCREASED [None]
  - CONVULSION [None]
  - CORONARY ARTERY RESTENOSIS [None]
  - ERECTILE DYSFUNCTION [None]
  - MYOCARDIAL INFARCTION [None]
  - URTICARIA [None]
  - WEIGHT INCREASED [None]
